FAERS Safety Report 14380251 (Version 3)
Quarter: 2018Q1

REPORT INFORMATION
  Report Type: Report from Study
  Country: US (occurrence: US)
  Receive Date: 20180112
  Receipt Date: 20180316
  Transmission Date: 20180509
  Serious: Yes (Other)
  Sender: FDA-Public Use
  Company Number: US-PFIZER INC-2017441906

PATIENT
  Age: 78 Year
  Sex: Female

DRUGS (1)
  1. IBRANCE [Suspect]
     Active Substance: PALBOCICLIB
     Indication: BREAST CANCER METASTATIC
     Dosage: 125 MG, 1X/DAY[ONCE A DAY]
     Route: 048
     Dates: start: 20170927

REACTIONS (14)
  - Diarrhoea [Recovered/Resolved]
  - Hypotension [Recovered/Resolved]
  - Decreased appetite [Recovered/Resolved]
  - Pain in extremity [Unknown]
  - Peripheral swelling [Recovered/Resolved]
  - Joint swelling [Recovered/Resolved]
  - Blood calcium decreased [Recovered/Resolved]
  - Anaemia [Unknown]
  - Pruritus [Not Recovered/Not Resolved]
  - Blood pressure increased [Unknown]
  - Lip dry [Unknown]
  - Bone marrow failure [Recovered/Resolved]
  - Drug dose omission [Unknown]
  - Chapped lips [Unknown]

NARRATIVE: CASE EVENT DATE: 2017
